FAERS Safety Report 4827946-4 (Version None)
Quarter: 2005Q4

REPORT INFORMATION
  Report Type: 
  Country: None (occurrence: None)
  Receive Date: 20051115
  Receipt Date: 20050527
  Transmission Date: 20060501
  Serious: Yes (Hospitalization)
  Sender: FDA-Public Use
  Company Number: US-BOEHRINGER INGELHEIM PHARMACEUTICALS, INC.-2005-BP-08864BP

PATIENT
  Age: 74 Year
  Sex: Female

DRUGS (10)
  1. MIRAPEX [Suspect]
     Indication: PARKINSON'S DISEASE
     Route: 048
     Dates: start: 19990101
  2. SINEMET [Concomitant]
  3. LASIX [Concomitant]
  4. ATENOLOL [Concomitant]
  5. TAMOXIFEN [Concomitant]
  6. POTASSIUM [Concomitant]
  7. ZESTRIL [Concomitant]
  8. CLONIDINE [Concomitant]
  9. GLIPIZIDE [Concomitant]
  10. ULTRAM [Concomitant]
     Dosage: 50 MG PRN

REACTIONS (4)
  - BALANCE DISORDER [None]
  - BREAST CANCER [None]
  - DYSKINESIA [None]
  - DYSTONIA [None]
